FAERS Safety Report 15034547 (Version 1)
Quarter: 2018Q2

REPORT INFORMATION
  Report Type: Spontaneous
  Country: IL (occurrence: IL)
  Receive Date: 20180620
  Receipt Date: 20180620
  Transmission Date: 20180711
  Serious: Yes (Hospitalization)
  Sender: FDA-Public Use
  Company Number: IL-TEVA-2018-IL-909430

PATIENT
  Age: 74 Year
  Sex: Male

DRUGS (11)
  1. FLUCONAZOLE. [Interacting]
     Active Substance: FLUCONAZOLE
     Route: 042
  2. CYCLOSPORINE A [Suspect]
     Active Substance: CYCLOSPORINE
     Indication: NEPHROTIC SYNDROME
     Route: 065
  3. PREDNISONE. [Suspect]
     Active Substance: PREDNISONE
     Indication: NEPHROTIC SYNDROME
     Route: 065
  4. PREDNISONE. [Suspect]
     Active Substance: PREDNISONE
     Dosage: TAPERING DOSAGE
     Route: 065
  5. CYCLOSPORINE A [Suspect]
     Active Substance: CYCLOSPORINE
     Route: 065
  6. FLUCONAZOLE. [Interacting]
     Active Substance: FLUCONAZOLE
     Route: 048
  7. PREDNISONE. [Suspect]
     Active Substance: PREDNISONE
     Dosage: LATER, THE TAPERING WAS CONTINUED
     Route: 065
  8. WARFARIN [Concomitant]
     Active Substance: WARFARIN
     Indication: CONGESTIVE CARDIOMYOPATHY
     Route: 065
  9. LIPOSOMAL AMPHOTERICIN B [Concomitant]
     Active Substance: AMPHOTERICIN B
     Indication: CRYPTOCOCCAL CUTANEOUS INFECTION
     Route: 065
  10. FLUCONAZOLE. [Suspect]
     Active Substance: FLUCONAZOLE
     Indication: CRYPTOCOCCAL CUTANEOUS INFECTION
     Dosage: LATER, DOSE REDUCED TO 200MG DAILY
     Route: 048
  11. SIMVASTATIN. [Interacting]
     Active Substance: SIMVASTATIN
     Route: 065

REACTIONS (14)
  - Focal segmental glomerulosclerosis [Unknown]
  - Hepatic enzyme increased [Recovered/Resolved]
  - Cryptococcosis [Recovered/Resolved]
  - Lymphadenopathy [Unknown]
  - Toxicity to various agents [Unknown]
  - Haematoma [Unknown]
  - Acute kidney injury [Recovering/Resolving]
  - Rhabdomyolysis [Recovered/Resolved]
  - Condition aggravated [Recovered/Resolved]
  - Wound [Recovered/Resolved]
  - Drug interaction [Unknown]
  - Cryptococcal cutaneous infection [Recovered/Resolved]
  - Proteinuria [Unknown]
  - Blister [Recovered/Resolved]
